FAERS Safety Report 20207376 (Version 1)
Quarter: 2021Q4

REPORT INFORMATION
  Report Type: Spontaneous
  Country: DE (occurrence: DE)
  Receive Date: 20211220
  Receipt Date: 20211220
  Transmission Date: 20220303
  Serious: Yes (Hospitalization)
  Sender: FDA-Public Use
  Company Number: DE-NOVARTISPH-NVSC2021DE285809

PATIENT
  Age: 68 Year
  Sex: Male
  Weight: 85 kg

DRUGS (6)
  1. PREDNISOLONE [Suspect]
     Active Substance: PREDNISOLONE
     Indication: Product used for unknown indication
     Dosage: 5 MG, 0.5-0-0-0, TABLETTEN
     Route: 048
  2. METHOTREXATE [Suspect]
     Active Substance: METHOTREXATE
     Indication: Product used for unknown indication
     Dosage: 15 MG, NACH SCHEMA, TABLETTEN
     Route: 048
  3. RAMIPRIL [Concomitant]
     Active Substance: RAMIPRIL
     Indication: Product used for unknown indication
     Dosage: 2.5 MG QD, 1-0-0-0, TABLETTEN
     Route: 048
  4. TAMSULOSIN [Concomitant]
     Active Substance: TAMSULOSIN
     Indication: Product used for unknown indication
     Dosage: 0.4 MG QD,  0-0-1-0, RETARD-KAPSELN
     Route: 048
  5. FINASTERIDE [Concomitant]
     Active Substance: FINASTERIDE
     Indication: Product used for unknown indication
     Dosage: 5 MG QD, 1-0-0-0, TABLETTEN
     Route: 048
  6. THIAMINE [Concomitant]
     Active Substance: THIAMINE
     Indication: Product used for unknown indication
     Dosage: 100 MG, 2-0-0-0, TABLETTEN
     Route: 048

REACTIONS (2)
  - Pain [Recovering/Resolving]
  - Herpes zoster [Recovering/Resolving]
